FAERS Safety Report 12540793 (Version 2)
Quarter: 2019Q3

REPORT INFORMATION
  Report Type: Spontaneous
  Country: GR (occurrence: GR)
  Receive Date: 20160708
  Receipt Date: 20190808
  Transmission Date: 20191004
  Serious: Yes (Other)
  Sender: FDA-Public Use
  Company Number: GR-JNJFOC-20160703794

PATIENT
  Sex: Female

DRUGS (5)
  1. URSOFALK [Concomitant]
     Active Substance: URSODIOL
     Indication: PRIMARY BILIARY CHOLANGITIS
     Dates: start: 2016
  2. EUTHYROX [Concomitant]
     Active Substance: LEVOTHYROXINE SODIUM
     Indication: AUTOIMMUNE THYROIDITIS
     Dosage: USING FOR GREATER THAN10-15 YEARS
  3. CO-DIOVAN [Concomitant]
     Active Substance: HYDROCHLOROTHIAZIDE\VALSARTAN
     Indication: BLOOD PRESSURE INCREASED
     Dosage: USING FOR GREATER THAN10-15 YEARS
  4. STELARA [Suspect]
     Active Substance: USTEKINUMAB
     Indication: PSORIASIS
     Route: 058
     Dates: start: 201505
  5. LACIPIL [Concomitant]
     Active Substance: LACIDIPINE
     Indication: BLOOD PRESSURE INCREASED
     Dosage: USING FOR GREATER THAN10-15 YEARS

REACTIONS (1)
  - Primary biliary cholangitis [Recovered/Resolved with Sequelae]

NARRATIVE: CASE EVENT DATE: 2016
